FAERS Safety Report 8791373 (Version 1)
Quarter: 2012Q4

REPORT INFORMATION
  Report Type: Spontaneous
  Country: GB (occurrence: None)
  Receive Date: 20120912
  Receipt Date: 20120912
  Transmission Date: 20130627
  Serious: Yes (Other)
  Sender: FDA-Public Use
  Company Number: IMP_05976_2012

PATIENT
  Age: 34 Year
  Sex: Female

DRUGS (2)
  1. PILOCARPINE [Suspect]
     Indication: EYE LASER SURGERY
     Dosage: (DF)
  2. APRACLONIDINE (UNKNOWN) [Concomitant]

REACTIONS (4)
  - Headache [None]
  - Nausea [None]
  - Vomiting [None]
  - Angle closure glaucoma [None]
